FAERS Safety Report 5918975-8 (Version None)
Quarter: 2008Q4

REPORT INFORMATION
  Report Type: 
  Country: None (occurrence: None)
  Receive Date: 20081010
  Receipt Date: 20080925
  Transmission Date: 20090506
  Serious: Yes (Hospitalization, Other)
  Sender: FDA-Public Use
  Company Number: 2008BI024827

PATIENT
  Age: 43 Year
  Sex: Male

DRUGS (18)
  1. ZEVALIN [Suspect]
     Indication: B-CELL LYMPHOMA
     Dosage: 0.4 MCI/KG; 1X; IV
     Route: 042
     Dates: start: 20080606, end: 20080606
  2. ZEVALIN [Suspect]
  3. RITUXIMAB [Concomitant]
  4. FLUDARABINE PHOSPHATE [Concomitant]
  5. MELPHALAN [Concomitant]
  6. THIOTEPA [Concomitant]
  7. ACYCLOVIR [Concomitant]
  8. FLUCONAZOLE [Concomitant]
  9. AMBINEB [Concomitant]
  10. CICLOSPORINA A [Concomitant]
  11. LORAZEPAM [Concomitant]
  12. FOLIC ACID [Concomitant]
  13. HIDROPOLIVIT [Concomitant]
  14. URSOCHOL [Concomitant]
  15. CODEINE PHOSPHATE [Concomitant]
  16. PENTAMIDINE [Concomitant]
  17. ZYRTEC [Concomitant]
  18. CORTICOIDS [Concomitant]

REACTIONS (3)
  - CYTOMEGALOVIRUS INFECTION [None]
  - NEUTROPENIA [None]
  - THROMBOCYTOPENIA [None]
